APPROVED DRUG PRODUCT: PENICILLIN G SODIUM
Active Ingredient: PENICILLIN G SODIUM
Strength: 5,000,000 UNITS/VIAL
Dosage Form/Route: INJECTABLE;INTRAMUSCULAR, INTRAVENOUS
Application: A063014 | Product #001
Applicant: WATSON LABORATORIES INC
Approved: Sep 13, 1988 | RLD: No | RS: No | Type: DISCN